FAERS Safety Report 18898959 (Version 1)
Quarter: 2021Q1

REPORT INFORMATION
  Report Type: Spontaneous
  Country: US (occurrence: US)
  Receive Date: 20210216
  Receipt Date: 20210216
  Transmission Date: 20210420
  Serious: Yes (Hospitalization)
  Sender: FDA-Public Use
  Company Number: None

PATIENT
  Age: 52 Year
  Sex: Male
  Weight: 158.9 kg

DRUGS (11)
  1. ATORVASTATIN [Concomitant]
     Active Substance: ATORVASTATIN
  2. CARVEDILOL. [Concomitant]
     Active Substance: CARVEDILOL
  3. ALBUTEROL. [Concomitant]
     Active Substance: ALBUTEROL
  4. BUSPIRONE [Concomitant]
     Active Substance: BUSPIRONE HYDROCHLORIDE
  5. SUCRALFATE. [Concomitant]
     Active Substance: SUCRALFATE
  6. HYDROCHLOROTHIAZIDE/LISINOPRIL [Concomitant]
     Active Substance: HYDROCHLOROTHIAZIDE\LISINOPRIL
  7. ASPIRIN. [Concomitant]
     Active Substance: ASPIRIN
  8. PRASUGREL. [Concomitant]
     Active Substance: PRASUGREL
  9. BAMLANIVIMAB FOR EUA [Suspect]
     Active Substance: BAMLANIVIMAB
     Indication: COVID-19
     Route: 042
     Dates: start: 20210121, end: 20210121
  10. MULTIVITAMIN [Concomitant]
     Active Substance: VITAMINS
  11. RABEPRAZOLE [Concomitant]
     Active Substance: RABEPRAZOLE

REACTIONS (4)
  - Panic attack [None]
  - Night sweats [None]
  - Cough [None]
  - Asthenia [None]

NARRATIVE: CASE EVENT DATE: 20210126
